APPROVED DRUG PRODUCT: PEMETREXED DISODIUM
Active Ingredient: PEMETREXED DISODIUM
Strength: EQ 500MG BASE/20ML (EQ 25MG BASE/ML)
Dosage Form/Route: SOLUTION;INTRAVENOUS
Application: N214218 | Product #002
Applicant: HOSPIRA INC
Approved: Jun 22, 2022 | RLD: Yes | RS: Yes | Type: RX